FAERS Safety Report 25457532 (Version 2)
Quarter: 2025Q3

REPORT INFORMATION
  Report Type: Spontaneous
  Country: EU (occurrence: EU)
  Receive Date: 20250619
  Receipt Date: 20250704
  Transmission Date: 20251020
  Serious: Yes (Other)
  Sender: NOVARTIS
  Company Number: EU-002147023-NVSC2025RO092969

PATIENT
  Age: 51 Year

DRUGS (1)
  1. ASCIMINIB [Suspect]
     Active Substance: ASCIMINIB
     Indication: Chronic myeloid leukaemia
     Route: 065
     Dates: start: 202403

REACTIONS (8)
  - Leukopenia [Recovered/Resolved]
  - Thrombocytopenia [Recovering/Resolving]
  - Herpes zoster [Recovered/Resolved]
  - Tracheitis [Recovered/Resolved]
  - Tooth abscess [Recovered/Resolved]
  - Abdominal discomfort [Recovering/Resolving]
  - Anaemia [Recovered/Resolved]
  - Abdominal distension [Recovering/Resolving]

NARRATIVE: CASE EVENT DATE: 20240601
